FAERS Safety Report 8474595-5 (Version None)
Quarter: 2012Q2

REPORT INFORMATION
  Report Type: 
  Country: None (occurrence: None)
  Receive Date: 20120622
  Receipt Date: 20120608
  Transmission Date: 20120825
  Serious: Yes (Hospitalization, Disabling, Other)
  Sender: FDA-Public Use
  Company Number: 1316690

PATIENT
  Age: 87 Year
  Sex: Female
  Weight: 33.1126 kg

DRUGS (14)
  1. FLUCLOXACILLIN [Suspect]
     Indication: ORTHOPEDIC PROCEDURE
     Dosage: 4 G GRAM(S), INTRAVENOUS (NOT OTHERWISE SPECIFIED)
     Route: 042
     Dates: start: 20120519
  2. QUININE SULFATE [Concomitant]
  3. BISOPROLOL FUMARATE [Concomitant]
  4. LEVOTHYROXINE SODIUM [Concomitant]
  5. WARFARIN SODIUM [Concomitant]
  6. ALENDRONATE SODIUM [Concomitant]
  7. CANDESARTAN [Concomitant]
  8. DIGOXIN [Concomitant]
  9. ALVERINE [Concomitant]
  10. ACETAMINOPHEN [Concomitant]
  11. ISOSORBIDE MONONITRATE [Concomitant]
  12. ZOPICLONE [Concomitant]
  13. GENTAMICIN SULFATE [Suspect]
     Indication: ORTHOPEDIC PROCEDURE
     Dosage: 160 MG MILLIGRAM(S), INTRAVENOUS (NOT OTHERWISE SPECIFIED_
     Route: 042
     Dates: start: 20120519
  14. SIMVADOR [Concomitant]

REACTIONS (1)
  - RENAL FAILURE ACUTE [None]
